FAERS Safety Report 10395049 (Version 2)
Quarter: 2014Q2

REPORT INFORMATION
  Report Type: Spontaneous
  Country: US (occurrence: None)
  Receive Date: 20130328
  Receipt Date: 20140604
  Transmission Date: 20141212
  Serious: Yes (Hospitalization)
  Sender: FDA-Public Use
  Company Number: 20120423CINRY2904

PATIENT
  Age: 29 Year
  Sex: Female

DRUGS (1)
  1. CINRYZE (C1 ESTERASE INHIBITOR (HUMAN)) (500 UNIT. INJECTION FOR INFUSION) (C1 ESTERASE INHIBITOR (HUMAN) ) [Suspect]
     Indication: HEREDITARY ANGIOEDEMA

REACTIONS (2)
  - Hereditary angioedema [None]
  - Drug dose omission [None]
